FAERS Safety Report 9140538 (Version 2)
Quarter: 2013Q3

REPORT INFORMATION
  Report Type: Spontaneous
  Country: US (occurrence: US)
  Receive Date: 20130305
  Receipt Date: 20130826
  Transmission Date: 20140515
  Serious: Yes (Life-Threatening, Hospitalization, Disabling, Other)
  Sender: FDA-Public Use
  Company Number: US-ABBOTT-13P-163-1057107-00

PATIENT
  Age: 49 Year
  Sex: Female

DRUGS (1)
  1. HUMIRA [Suspect]
     Indication: PSORIASIS
     Dates: start: 200811, end: 200904

REACTIONS (17)
  - Respiratory disorder [Recovered/Resolved]
  - Post procedural complication [Recovered/Resolved]
  - Squamous cell carcinoma of the tongue [Unknown]
  - Lymphoedema [Not Recovered/Not Resolved]
  - Speech disorder [Not Recovered/Not Resolved]
  - Depression [Not Recovered/Not Resolved]
  - Neuroma [Unknown]
  - Seizure like phenomena [Unknown]
  - Hemiparesis [Unknown]
  - Neck pain [Unknown]
  - Pain [Unknown]
  - Hypophagia [Unknown]
  - Dysphagia [Unknown]
  - Joint range of motion decreased [Unknown]
  - Hearing impaired [Unknown]
  - Scar [Unknown]
  - Fatigue [Not Recovered/Not Resolved]
